FAERS Safety Report 4304553-3 (Version None)
Quarter: 2004Q1

REPORT INFORMATION
  Report Type: 
  Country: None (occurrence: None)
  Receive Date: 20040226
  Receipt Date: 20040220
  Transmission Date: 20041129
  Serious: Yes (Hospitalization)
  Sender: FDA-Public Use
  Company Number: FR-BRISTOL-MYERS SQUIBB COMPANY-12514469

PATIENT
  Age: 60 Year
  Sex: Male

DRUGS (5)
  1. APROVEL TABS 300 MG [Suspect]
     Route: 048
  2. PLAVIX [Suspect]
     Route: 048
  3. TAHOR [Concomitant]
  4. PREVISCAN [Concomitant]
  5. GLUCOPHAGE [Concomitant]

REACTIONS (2)
  - ANAEMIA [None]
  - HYPERKALAEMIA [None]
